FAERS Safety Report 14789625 (Version 1)
Quarter: 2018Q2

REPORT INFORMATION
  Report Type: Spontaneous
  Country: DE (occurrence: DE)
  Receive Date: 20180423
  Receipt Date: 20180423
  Transmission Date: 20180711
  Serious: Yes (Other)
  Sender: FDA-Public Use
  Company Number: DE-BAYER-2018-071570

PATIENT
  Sex: Female

DRUGS (2)
  1. ASPIRIN PROTECT 100 MG [Suspect]
     Active Substance: ASPIRIN
     Dosage: UNK
  2. ASPIRIN PROTECT 100 MG [Suspect]
     Active Substance: ASPIRIN
     Dosage: UNK

REACTIONS (2)
  - Dyspepsia [None]
  - Diverticulitis [None]
